FAERS Safety Report 19013003 (Version 3)
Quarter: 2021Q3

REPORT INFORMATION
  Report Type: Report from Study
  Country: US (occurrence: US)
  Receive Date: 20210315
  Receipt Date: 20210707
  Transmission Date: 20211014
  Serious: Yes (Congenital Anomaly)
  Sender: FDA-Public Use
  Company Number: US-GILEAD-2021-0520362

PATIENT
  Age: 39 Week
  Sex: Female
  Weight: 3.28 kg

DRUGS (2)
  1. EMTRICITABINE;TENOFOVIR DISOPROXIL FUMARATE [Suspect]
     Active Substance: EMTRICITABINE\TENOFOVIR DISOPROXIL FUMARATE
     Indication: HIV INFECTION
     Dosage: 500 MG, QD
     Route: 064
     Dates: start: 20200425, end: 20210206
  2. ISENTRESS [Suspect]
     Active Substance: RALTEGRAVIR POTASSIUM
     Indication: PRODUCT USED FOR UNKNOWN INDICATION
     Dosage: 400 MG, QD
     Route: 064
     Dates: start: 20200425, end: 20210206

REACTIONS (2)
  - Foetal exposure during pregnancy [Recovered/Resolved]
  - Acoustic stimulation tests abnormal [Recovered/Resolved]

NARRATIVE: CASE EVENT DATE: 20200425
